FAERS Safety Report 24244100 (Version 1)
Quarter: 2024Q3

REPORT INFORMATION
  Report Type: Spontaneous
  Country: US (occurrence: US)
  Receive Date: 20240823
  Receipt Date: 20240823
  Transmission Date: 20241017
  Serious: Yes (Other)
  Sender: AMGEN
  Company Number: US-AMGEN-USASP2024164300

PATIENT

DRUGS (2)
  1. BEVACIZUMAB [Suspect]
     Active Substance: BEVACIZUMAB
     Indication: Ovarian cancer recurrent
     Dosage: 15 MILLIGRAM/KILOGRAM, Q3WK
     Route: 042
  2. CYCLOPHOSPHAMIDE [Concomitant]
     Active Substance: CYCLOPHOSPHAMIDE
     Indication: Ovarian cancer recurrent
     Dosage: 50 MILLIGRAM, QD
     Route: 048

REACTIONS (5)
  - Cystitis haemorrhagic [Unknown]
  - Thrombocytopenia [Unknown]
  - Ovarian cancer [Unknown]
  - Hypertension [Unknown]
  - Therapy partial responder [Unknown]
